FAERS Safety Report 21650340 (Version 3)
Quarter: 2023Q4

REPORT INFORMATION
  Report Type: Spontaneous
  Country: US (occurrence: US)
  Receive Date: 20221128
  Receipt Date: 20231218
  Transmission Date: 20240110
  Serious: No
  Sender: FDA-Public Use
  Company Number: US-PFIZER INC-PV202200109186

PATIENT
  Age: 78 Year
  Sex: Female

DRUGS (1)
  1. XELJANZ XR [Suspect]
     Active Substance: TOFACITINIB CITRATE

REACTIONS (6)
  - Pain [Unknown]
  - Hypoacusis [Unknown]
  - Bone pain [Unknown]
  - Sensitivity to weather change [Unknown]
  - Intentional product misuse [Unknown]
  - Asthma [Unknown]
